FAERS Safety Report 9563727 (Version 1)
Quarter: 2013Q3

REPORT INFORMATION
  Report Type: Spontaneous
  Country: US (occurrence: None)
  Receive Date: 20130926
  Receipt Date: 20130926
  Transmission Date: 20140515
  Serious: No
  Sender: FDA-Public Use
  Company Number: None

PATIENT
  Age: 71 Year
  Sex: Female
  Weight: 79.38 kg

DRUGS (10)
  1. FENTANYL [Suspect]
  2. FELODININE [Concomitant]
  3. CELEBREX [Concomitant]
  4. LOVASTATIN [Concomitant]
  5. LANSOPRAZOLE [Concomitant]
  6. PREMARIN [Concomitant]
  7. FISH OIL [Concomitant]
  8. ASPIRIN [Concomitant]
  9. CENTRUM SILVER [Concomitant]
  10. CITRACAL [Concomitant]

REACTIONS (6)
  - Procedural complication [None]
  - Blood pressure increased [None]
  - Malaise [None]
  - Nausea [None]
  - Retching [None]
  - Vomiting [None]
